FAERS Safety Report 4569532-X (Version None)
Quarter: 2005Q1

REPORT INFORMATION
  Report Type: 
  Country: None (occurrence: None)
  Receive Date: 20050201
  Receipt Date: 20050120
  Transmission Date: 20050727
  Serious: Yes (Hospitalization)
  Sender: FDA-Public Use
  Company Number: 2005CG00164

PATIENT
  Age: 81 Year
  Sex: Female

DRUGS (10)
  1. OMEPRAZOLE [Suspect]
     Dates: start: 20031125, end: 20031203
  2. SOLUPRED [Suspect]
     Dates: start: 20031107, end: 20031212
  3. TANGANIL [Suspect]
     Dates: start: 20031107, end: 20031120
  4. TRILEPTAL [Suspect]
     Dates: start: 20031107, end: 20031203
  5. DEROXAT [Suspect]
     Dates: start: 20031107, end: 20031120
  6. CACIT D3 [Concomitant]
  7. ZOCORD [Concomitant]
  8. TILDIEM [Concomitant]
  9. ASPEGIC /FRA/ [Concomitant]
  10. CORDIPATCH [Concomitant]

REACTIONS (3)
  - ACUTE GENERALISED EXANTHEMATOUS PUSTULOSIS [None]
  - CHEILITIS [None]
  - EYE PRURITUS [None]
